FAERS Safety Report 8365629-7 (Version None)
Quarter: 2012Q2

REPORT INFORMATION
  Report Type: 
  Country: None (occurrence: None)
  Receive Date: 20120516
  Receipt Date: 20120512
  Transmission Date: 20120825
  Serious: Yes (Death)
  Sender: FDA-Public Use
  Company Number: FR-MERCK-1205FRA00067

PATIENT
  Age: 77 Year
  Sex: Female
  Weight: 101 kg

DRUGS (2)
  1. METFORMIN PAMOATE [Concomitant]
     Route: 048
  2. JANUVIA [Suspect]
     Indication: TYPE 2 DIABETES MELLITUS
     Route: 048
     Dates: start: 20100407, end: 20120310

REACTIONS (1)
  - CEREBROVASCULAR ACCIDENT [None]
